FAERS Safety Report 5491666-6 (Version None)
Quarter: 2007Q4

REPORT INFORMATION
  Report Type: 
  Country: None (occurrence: None)
  Receive Date: 20071018
  Receipt Date: 20071018
  Transmission Date: 20080405
  Serious: No
  Sender: FDA-Public Use
  Company Number: None

PATIENT
  Age: 37 Year
  Sex: Male

DRUGS (5)
  1. AUGMENTIN '125' [Suspect]
     Dates: start: 20050630, end: 20050709
  2. ACETAMINOPHEN [Concomitant]
  3. TUMS [Concomitant]
  4. MYLANTA [Concomitant]
  5. MOTRIN [Concomitant]

REACTIONS (24)
  - AGITATION [None]
  - AMMONIA INCREASED [None]
  - ANOREXIA [None]
  - ASTHENIA [None]
  - CHOLELITHIASIS [None]
  - CHOLESTASIS [None]
  - CONFUSIONAL STATE [None]
  - DIARRHOEA [None]
  - DYSPNOEA [None]
  - FATIGUE [None]
  - GALLBLADDER DISORDER [None]
  - HEPATITIS [None]
  - HYPERHIDROSIS [None]
  - IMPAIRED HEALING [None]
  - INSOMNIA [None]
  - LIVER DISORDER [None]
  - LIVER INJURY [None]
  - LIVER PALPABLE SUBCOSTAL [None]
  - MEMORY IMPAIRMENT [None]
  - OTITIS MEDIA [None]
  - PROCEDURAL COMPLICATION [None]
  - PRODUCTIVE COUGH [None]
  - SLEEP DISORDER [None]
  - WEIGHT DECREASED [None]
